FAERS Safety Report 4590136-7 (Version None)
Quarter: 2005Q1

REPORT INFORMATION
  Report Type: 
  Country: None (occurrence: None)
  Receive Date: 20050217
  Receipt Date: 20050207
  Transmission Date: 20050727
  Serious: Yes (Hospitalization)
  Sender: FDA-Public Use
  Company Number: 2005026456

PATIENT
  Age: 79 Year
  Sex: Male

DRUGS (4)
  1. ZYVOX [Suspect]
     Indication: ANTIBACTERIAL PROPHYLAXIS
     Dosage: 2 DOSE FORM, ORAL
     Route: 048
     Dates: start: 20041221, end: 20050102
  2. TEICOPLANIN (TEICOPLANIN) [Suspect]
     Indication: ANTIBACTERIAL PROPHYLAXIS
     Dosage: 1500 MG, INTRAVENOUS
     Route: 042
     Dates: start: 20041214, end: 20041215
  3. LEVOFLOXACIN [Suspect]
     Indication: ANTIBACTERIAL PROPHYLAXIS
     Dosage: 750 MG, INTRAVENOUS
     Route: 042
     Dates: start: 20041219, end: 20041221
  4. RIFAMPICIN [Concomitant]
     Indication: ANTIBACTERIAL PROPHYLAXIS
     Dosage: 1200 MG (INTERVAL:  EVERY DAY), INTRAVENOUS
     Route: 042
     Dates: start: 20041219, end: 20041221

REACTIONS (3)
  - CONDITION AGGRAVATED [None]
  - FEMORAL NECK FRACTURE [None]
  - RENAL FAILURE CHRONIC [None]
